FAERS Safety Report 13232865 (Version 2)
Quarter: 2017Q1

REPORT INFORMATION
  Report Type: Spontaneous
  Country: FR (occurrence: FR)
  Receive Date: 20170214
  Receipt Date: 20170314
  Transmission Date: 20170428
  Serious: Yes (Death, Hospitalization, Other)
  Sender: FDA-Public Use
  Company Number: FR-EXELIXIS-CABO-17008224

PATIENT
  Age: 66 Year
  Sex: Male

DRUGS (5)
  1. ERYTHROMYCIN. [Suspect]
     Active Substance: ERYTHROMYCIN
     Indication: IMPAIRED GASTRIC EMPTYING
     Dosage: 250 MG, TID
     Route: 042
     Dates: start: 20170107, end: 20170110
  2. OXYCODONE AND ACETAMINOPHEN [Concomitant]
     Active Substance: ACETAMINOPHEN\OXYCODONE HYDROCHLORIDE
  3. TRANSIPEG [Concomitant]
     Active Substance: POLYETHYLENE GLYCOL 3350
  4. PRIMPERAN [Concomitant]
     Active Substance: METOCLOPRAMIDE HYDROCHLORIDE
  5. CABOMETYX [Suspect]
     Active Substance: CABOZANTINIB S-MALATE
     Indication: RENAL CANCER STAGE IV
     Dosage: 60 MG, QD
     Route: 048
     Dates: start: 201611, end: 20170110

REACTIONS (6)
  - Malignant neoplasm progression [Fatal]
  - Bicytopenia [Fatal]
  - Abdominal pain [Recovering/Resolving]
  - Cardiorenal syndrome [Fatal]
  - Small intestinal obstruction [Recovered/Resolved]
  - Nephrotic syndrome [Fatal]

NARRATIVE: CASE EVENT DATE: 20170104
